FAERS Safety Report 15450423 (Version 1)
Quarter: 2018Q4

REPORT INFORMATION
  Report Type: Spontaneous
  Country: US (occurrence: US)
  Receive Date: 20181001
  Receipt Date: 20181001
  Transmission Date: 20190204
  Serious: Yes (Death)
  Sender: FDA-Public Use
  Company Number: US-REGULIS-2055516

PATIENT
  Age: 60 Year
  Sex: Female

DRUGS (3)
  1. PACKED RED BLOOD CELLS. [Concomitant]
  2. METHYLENE BLUE. [Suspect]
     Active Substance: METHYLENE BLUE
     Indication: METHAEMOGLOBINAEMIA
  3. QUINIDINE-DEXTROMETHORPHAN [Concomitant]

REACTIONS (1)
  - Drug ineffective [None]
